FAERS Safety Report 13870223 (Version 2)
Quarter: 2017Q3

REPORT INFORMATION
  Report Type: Spontaneous
  Country: US (occurrence: US)
  Receive Date: 20170815
  Receipt Date: 20170901
  Transmission Date: 20171127
  Serious: Yes (Other)
  Sender: FDA-Public Use
  Company Number: US-MYLANLABS-2017M1048974

PATIENT

DRUGS (1)
  1. AMFETAMINE/DEXAMFETAMINE [Suspect]
     Active Substance: AMPHETAMINE SULFATE\DEXTROAMPHETAMINE
     Indication: PRODUCT USED FOR UNKNOWN INDICATION
     Dosage: UNK

REACTIONS (8)
  - Feeling abnormal [Unknown]
  - Drug ineffective [Unknown]
  - Loss of consciousness [Unknown]
  - Heart rate increased [Unknown]
  - Malaise [Unknown]
  - Vomiting [Unknown]
  - Feeling hot [Unknown]
  - Hot flush [Unknown]
